FAERS Safety Report 5760901-9 (Version None)
Quarter: 2008Q2

REPORT INFORMATION
  Report Type: 
  Country: None (occurrence: None)
  Receive Date: 20080606
  Receipt Date: 20080108
  Transmission Date: 20081010
  Serious: No
  Sender: FDA-Public Use
  Company Number: US-ASTRAZENECA-2008UW00552

PATIENT
  Age: 86 Year
  Sex: Female
  Weight: 49.9 kg

DRUGS (6)
  1. OMEPRAZOLE [Suspect]
     Indication: GASTROOESOPHAGEAL REFLUX DISEASE
     Route: 048
     Dates: start: 20071114
  2. ACTONEL [Concomitant]
  3. ZOLOFT [Concomitant]
  4. GENERIC LIPITOR [Concomitant]
  5. ASACOL [Concomitant]
  6. NEXIUM [Concomitant]
     Route: 048
     Dates: end: 20071101

REACTIONS (2)
  - DIARRHOEA [None]
  - STOMACH DISCOMFORT [None]
